FAERS Safety Report 9332882 (Version 5)
Quarter: 2014Q1

REPORT INFORMATION
  Report Type: Spontaneous
  Country: GB (occurrence: None)
  Receive Date: 20130603
  Receipt Date: 20140324
  Transmission Date: 20141002
  Serious: Yes (Life-Threatening, Hospitalization)
  Sender: FDA-Public Use
  Company Number: AUR-APL-2013-04417

PATIENT
  Age: 72 Year
  Sex: Male

DRUGS (12)
  1. CLOPIDOGREL [Suspect]
     Indication: MYOCARDIAL INFARCTION
     Route: 048
     Dates: start: 201206
  2. CLOPIDOGREL [Suspect]
     Indication: PROPHYLAXIS
     Route: 048
     Dates: start: 201206
  3. ASPIRIN [Suspect]
     Indication: ANTIPLATELET THERAPY
     Route: 048
     Dates: start: 20120626, end: 20120717
  4. ASPIRIN [Suspect]
     Indication: PROPHYLAXIS
     Route: 048
     Dates: start: 20120626, end: 20120717
  5. EPLERENONE [Suspect]
     Indication: ACUTE MYOCARDIAL INFARCTION
     Dosage: 50 MG (25 MG,2 IN 1 D)
     Route: 048
     Dates: start: 20120625, end: 20120625
  6. ATORVASTATIN (ATORVASTATIN) [Concomitant]
  7. BISOPROLOL (BISOPROLOL) [Concomitant]
  8. FUROSEMIDE (FUROSEMIDE) [Concomitant]
  9. GLYCERYL TRINITRATE (GLYCERYL TRINITRATE) [Concomitant]
  10. OMEPRAZOLE (OMEPRAZOLE) [Concomitant]
  11. PERINDOPRIL (PERINDOPRIL) [Concomitant]
  12. FERROUS SULPHATE (FERROUS SULFATE) [Concomitant]

REACTIONS (11)
  - Protein total decreased [None]
  - Gastrointestinal haemorrhage [None]
  - Blood urea increased [None]
  - Oesophagitis [None]
  - Gastrointestinal telangiectasia [None]
  - Haemangioma [None]
  - Diverticulum [None]
  - Large intestine polyp [None]
  - Iron deficiency anaemia [None]
  - Telangiectasia [None]
  - Gastrooesophageal reflux disease [None]
